FAERS Safety Report 17108631 (Version 1)
Quarter: 2019Q4

REPORT INFORMATION
  Report Type: Report from Study
  Country: US (occurrence: US)
  Receive Date: 20191204
  Receipt Date: 20191204
  Transmission Date: 20200122
  Serious: Yes (Death)
  Sender: FDA-Public Use
  Company Number: US-ROCHE-2488606

PATIENT
  Sex: Male

DRUGS (3)
  1. LUCENTIS [Suspect]
     Active Substance: RANIBIZUMAB
     Indication: DIABETES MELLITUS
     Route: 050
     Dates: start: 20180425, end: 20180822
  2. LUCENTIS [Suspect]
     Active Substance: RANIBIZUMAB
     Indication: DIABETIC RETINOPATHY
  3. AVASTIN [Suspect]
     Active Substance: BEVACIZUMAB
     Indication: PRODUCT USED FOR UNKNOWN INDICATION
     Route: 065
     Dates: start: 20130521, end: 20180215

REACTIONS (1)
  - Death [Fatal]
